FAERS Safety Report 6004280-0 (Version None)
Quarter: 2008Q4

REPORT INFORMATION
  Report Type: 
  Country: None (occurrence: None)
  Receive Date: 20081215
  Receipt Date: 20081215
  Transmission Date: 20090506
  Serious: Yes (Life-Threatening, Hospitalization)
  Sender: FDA-Public Use
  Company Number: None

PATIENT
  Age: 46 Year
  Sex: Female
  Weight: 74.8435 kg

DRUGS (1)
  1. ENBREL [Suspect]
     Indication: RHEUMATOID ARTHRITIS
     Dosage: 50 MG SQ WEEKLY SQ
     Route: 058
     Dates: start: 20030307, end: 20081018

REACTIONS (3)
  - COLON CANCER [None]
  - LIMB DEFORMITY [None]
  - METASTASES TO LIVER [None]
